FAERS Safety Report 20825718 (Version 1)
Quarter: 2022Q2

REPORT INFORMATION
  Report Type: Spontaneous
  Country: CN (occurrence: CN)
  Receive Date: 20220513
  Receipt Date: 20220513
  Transmission Date: 20220720
  Serious: Yes (Hospitalization, Other)
  Sender: FDA-Public Use
  Company Number: CN-SUN PHARMACEUTICAL INDUSTRIES LTD-2022R1-336247

PATIENT
  Age: 43 Year
  Sex: Female

DRUGS (1)
  1. DEXAMETHASONE [Suspect]
     Active Substance: DEXAMETHASONE
     Indication: Immunosuppression
     Dosage: 40 MILLIGRAM, DAILY
     Route: 065

REACTIONS (4)
  - Cavernous sinus syndrome [Recovered/Resolved]
  - Mycobacterium chelonae infection [Recovered/Resolved]
  - Arterial stenosis [Recovered/Resolved]
  - Vascular pseudoaneurysm [Recovered/Resolved]
